FAERS Safety Report 9722464 (Version 2)
Quarter: 2013Q4

REPORT INFORMATION
  Report Type: Spontaneous
  Country: US (occurrence: US)
  Receive Date: 20131202
  Receipt Date: 20131202
  Transmission Date: 20140711
  Serious: Yes (Other)
  Sender: FDA-Public Use
  Company Number: US-RB-060174-13

PATIENT
  Age: 64 Year
  Sex: Male

DRUGS (2)
  1. MUCINEX DM [Suspect]
     Indication: INCREASED UPPER AIRWAY SECRETION
     Route: 048
     Dates: start: 20131117
  2. CLARITIN [Suspect]
     Indication: INCREASED UPPER AIRWAY SECRETION
     Route: 048
     Dates: start: 20131117

REACTIONS (2)
  - Vision blurred [Recovered/Resolved]
  - Eyelid oedema [Recovered/Resolved]
